FAERS Safety Report 6510198-7 (Version None)
Quarter: 2009Q4

REPORT INFORMATION
  Report Type: 
  Country: None (occurrence: None)
  Receive Date: 20091222
  Receipt Date: 20091214
  Transmission Date: 20100525
  Serious: Yes (Hospitalization)
  Sender: FDA-Public Use
  Company Number: JP-B.I. PHARMACEUTICALS,INC./RIDGEFIELD-2009-BP-14056NB

PATIENT
  Sex: Male
  Weight: 71.5 kg

DRUGS (6)
  1. MICARDIS [Suspect]
     Indication: HYPERTENSION
     Dosage: 40 MG
     Route: 048
     Dates: start: 20061030, end: 20090324
  2. LOCHOL [Suspect]
     Dosage: 30 MG
     Route: 048
     Dates: start: 20050304, end: 20090324
  3. EPADEL S [Suspect]
     Dosage: 1800 MG
     Route: 048
     Dates: start: 20050304, end: 20090324
  4. ASPIRIN [Suspect]
     Dosage: 100 MG
     Route: 048
     Dates: start: 20050402, end: 20090324
  5. KETOBUN [Suspect]
     Dosage: 1800 MG
     Route: 048
     Dates: start: 20050402, end: 20090324
  6. MUCOSTA [Suspect]
     Indication: PROPHYLAXIS
     Dosage: 100 MG
     Route: 048
     Dates: start: 20070424, end: 20090324

REACTIONS (1)
  - HEPATITIS ACUTE [None]
